FAERS Safety Report 19696480 (Version 1)
Quarter: 2021Q3

REPORT INFORMATION
  Report Type: Spontaneous
  Country: US (occurrence: US)
  Receive Date: 20210813
  Receipt Date: 20210813
  Transmission Date: 20211014
  Serious: No
  Sender: FDA-Public Use
  Company Number: US-JNJFOC-20210808143

PATIENT
  Sex: Male

DRUGS (1)
  1. ZYRTEC [Suspect]
     Active Substance: CETIRIZINE HYDROCHLORIDE
     Indication: MULTIPLE ALLERGIES
     Dosage: ONE TABLET ONCE A DAY FOR 3 DAYS
     Route: 065
     Dates: start: 202107, end: 202107

REACTIONS (2)
  - Heart rate increased [Unknown]
  - Insomnia [Unknown]

NARRATIVE: CASE EVENT DATE: 202107
